FAERS Safety Report 9241863 (Version 1)
Quarter: 2013Q2

REPORT INFORMATION
  Report Type: Spontaneous
  Country: IE (occurrence: IE)
  Receive Date: 20130419
  Receipt Date: 20130419
  Transmission Date: 20140414
  Serious: No
  Sender: FDA-Public Use
  Company Number: IE-JNJFOC-20130408674

PATIENT
  Age: 5 Decade
  Sex: Male

DRUGS (1)
  1. NICORETTE (UNSPECIFIED) [Suspect]
     Indication: PRODUCT USED FOR UNKNOWN INDICATION
     Route: 065

REACTIONS (2)
  - Mouth ulceration [Unknown]
  - Stomatitis [Unknown]
